FAERS Safety Report 11569746 (Version 1)
Quarter: 2015Q3

REPORT INFORMATION
  Report Type: Spontaneous
  Country: None (occurrence: None)
  Receive Date: 20150928
  Receipt Date: 20150928
  Transmission Date: 20151125
  Serious: No
  Sender: FDA-Public Use
  Company Number: None

PATIENT
  Age: 56 Year
  Sex: Female
  Weight: 57.15 kg

DRUGS (1)
  1. BELSOMRA [Suspect]
     Active Substance: SUVOREXANT
     Indication: INSOMNIA

REACTIONS (7)
  - Sleep disorder [None]
  - Fear [None]
  - Hallucination [None]
  - Somnolence [None]
  - Panic reaction [None]
  - Initial insomnia [None]
  - Paralysis [None]

NARRATIVE: CASE EVENT DATE: 20150924
